FAERS Safety Report 6442225-X (Version None)
Quarter: 2009Q4

REPORT INFORMATION
  Report Type: 
  Country: None (occurrence: None)
  Receive Date: 20091116
  Receipt Date: 20091106
  Transmission Date: 20100525
  Serious: Yes (Other)
  Sender: FDA-Public Use
  Company Number: US-AMGEN-QUU341897

PATIENT
  Sex: Male
  Weight: 110.8 kg

DRUGS (6)
  1. ENBREL [Suspect]
     Indication: RHEUMATOID ARTHRITIS
     Route: 058
     Dates: start: 20010101
  2. BYETTA [Concomitant]
  3. ACTOS [Concomitant]
  4. VYTORIN [Concomitant]
  5. COREG [Concomitant]
  6. FISH OIL [Concomitant]

REACTIONS (2)
  - INJECTION SITE IRRITATION [None]
  - RENAL FAILURE [None]
